FAERS Safety Report 11695749 (Version 1)
Quarter: 2015Q4

REPORT INFORMATION
  Report Type: Spontaneous
  Country: US (occurrence: None)
  Receive Date: 20151103
  Receipt Date: 20151103
  Transmission Date: 20160304
  Serious: Yes (Hospitalization, Disabling, Other)
  Sender: FDA-Public Use
  Company Number: None

PATIENT
  Age: 91 Year
  Sex: Female
  Weight: 67.59 kg

DRUGS (25)
  1. DECADRON [Suspect]
     Active Substance: DEXAMETHASONE
     Dosage: 5 PILLS?ONCE/WEEL?TAKEN BY MOUTH
     Route: 048
     Dates: start: 20151005, end: 20151006
  2. ZOLOFT [Concomitant]
     Active Substance: SERTRALINE HYDROCHLORIDE
  3. SYNTHROID/LEVOTHYROXINE [Concomitant]
  4. POMALIDOMIDE/POMALYST [Concomitant]
  5. NORCO [Concomitant]
     Active Substance: ACETAMINOPHEN\HYDROCODONE BITARTRATE
  6. ZANTAC/RANTIDINE [Concomitant]
  7. ASPIRIN. [Concomitant]
     Active Substance: ASPIRIN
  8. COLACE/DOCUSATE SODIUM [Concomitant]
  9. GABAPENTIN/NEURONTIN [Concomitant]
  10. MORPHINE SULFATE ER [Concomitant]
     Active Substance: MORPHINE SULFATE
  11. VITAMIN B-12/CYANOCOBALAMIN [Concomitant]
  12. IRON/FERROUS SULFATE [Concomitant]
  13. VITAMIN D3/CHOLECALCIFEROL [Concomitant]
  14. ZOFRAN/ONDANSETRON [Concomitant]
  15. LIDOCAINE. [Concomitant]
     Active Substance: LIDOCAINE
  16. ZYRTEC/CETIRIZINE [Concomitant]
  17. SENAKOT/SENNA [Concomitant]
  18. CARFILZOMIB INFUSION [Concomitant]
  19. ACETOMINOPHEN [Concomitant]
  20. MULTIVITAMIN [Concomitant]
     Active Substance: VITAMINS
  21. POMALYST [Suspect]
     Active Substance: POMALIDOMIDE
     Indication: PLASMA CELL MYELOMA
     Route: 048
     Dates: start: 20151005, end: 20151022
  22. HALIPERIDOL/HALIDOL [Concomitant]
  23. PANTOPRAZOLE/PROTONIX [Concomitant]
  24. MIRALAX/POLYETHYLENE GLYCOL [Concomitant]
  25. DEXAMETHASONE. [Concomitant]
     Active Substance: DEXAMETHASONE

REACTIONS (10)
  - Vomiting [None]
  - Anger [None]
  - Transcription medication error [None]
  - Weight decreased [None]
  - Feeling hot [None]
  - Nausea [None]
  - Pneumonia [None]
  - Erythema [None]
  - White blood cell count decreased [None]
  - Incorrect dose administered [None]

NARRATIVE: CASE EVENT DATE: 20151022
